FAERS Safety Report 4583337-5 (Version None)
Quarter: 2005Q1

REPORT INFORMATION
  Report Type: 
  Country: None (occurrence: None)
  Receive Date: 20050125
  Receipt Date: 20041015
  Transmission Date: 20050727
  Serious: No
  Sender: FDA-Public Use
  Company Number: USA031254447

PATIENT
  Age: 85 Year
  Sex: Female
  Weight: 42 kg

DRUGS (5)
  1. FORTEO [Suspect]
     Indication: LUMBAR VERTEBRAL FRACTURE
     Dates: start: 20031110
  2. FORTEO [Suspect]
     Indication: OSTEOPOROSIS
     Dates: start: 20031110
  3. LASIX [Concomitant]
  4. POTASSIUM CHLORIDE [Concomitant]
  5. SYNTHROID [Concomitant]

REACTIONS (7)
  - DIZZINESS [None]
  - FLUID RETENTION [None]
  - MUSCLE SPASMS [None]
  - OEDEMA PERIPHERAL [None]
  - PAIN [None]
  - PRURITUS [None]
  - WEIGHT DECREASED [None]
